FAERS Safety Report 4539304-0 (Version None)
Quarter: 2004Q4

REPORT INFORMATION
  Report Type: 
  Country: None (occurrence: None)
  Receive Date: 20041223
  Receipt Date: 20041005
  Transmission Date: 20050328
  Serious: Yes (Other)
  Sender: FDA-Public Use
  Company Number: USA-04-0193-STR

PATIENT
  Sex: Male

DRUGS (1)
  1. STRIANT [Suspect]

REACTIONS (1)
  - CHEST PAIN [None]
